FAERS Safety Report 5312353-0 (Version None)
Quarter: 2007Q2

REPORT INFORMATION
  Report Type: 
  Country: None (occurrence: None)
  Receive Date: 20070430
  Receipt Date: 20070425
  Transmission Date: 20071010
  Serious: Yes (Death)
  Sender: FDA-Public Use
  Company Number: 2007UW08022

PATIENT
  Age: 71 Year
  Sex: Male

DRUGS (8)
  1. SEROQUEL [Suspect]
     Indication: PARKINSON'S DISEASE
     Route: 048
  2. MACRODANTIN [Concomitant]
  3. SERTRALINE [Concomitant]
  4. RIVOTRIL [Concomitant]
  5. PARTIDOPA [Concomitant]
  6. PALOPA HDS [Concomitant]
  7. RITIMIX [Concomitant]
  8. EXLON [Concomitant]

REACTIONS (3)
  - DEATH [None]
  - DEHYDRATION [None]
  - WEIGHT DECREASED [None]
